FAERS Safety Report 14843222 (Version 1)
Quarter: 2018Q2

REPORT INFORMATION
  Report Type: Spontaneous
  Country: SE (occurrence: SE)
  Receive Date: 20180503
  Receipt Date: 20180503
  Transmission Date: 20180711
  Serious: Yes (Other)
  Sender: FDA-Public Use
  Company Number: SE-009507513-1804SWE010443

PATIENT
  Sex: Female

DRUGS (1)
  1. NUVARING [Suspect]
     Active Substance: ETHINYL ESTRADIOL\ETONOGESTREL
     Indication: CONTRACEPTION
     Dosage: 1 DF, UNK

REACTIONS (7)
  - Malaise [Unknown]
  - Anxiety [Unknown]
  - Depression [Unknown]
  - Suicidal ideation [Unknown]
  - Mood swings [Unknown]
  - Negative thoughts [Unknown]
  - Weight increased [Unknown]
